FAERS Safety Report 5809693-5 (Version None)
Quarter: 2008Q3

REPORT INFORMATION
  Report Type: 
  Country: None (occurrence: None)
  Receive Date: 20080711
  Receipt Date: 20080711
  Transmission Date: 20090109
  Serious: Yes (Other)
  Sender: FDA-Public Use
  Company Number: None

PATIENT

DRUGS (3)
  1. NEOSTIGMINE METHYLSULFATE, AMERICAN REGENT, 1 MG/ML [Suspect]
     Indication: PARALYSIS
     Dosage: IV
     Route: 042
  2. NEOSTIGMINE METHYLSULFATE, AMERICAN REGENT, 1 MG/ML [Suspect]
     Indication: POST PROCEDURAL COMPLICATION
     Dosage: IV
     Route: 042
  3. NEOSTIGMINE METHYLSULFATE, AMERICAN REGENT, 1 MG/ML [Suspect]

REACTIONS (3)
  - ANAESTHETIC COMPLICATION [None]
  - DRUG EFFECT DECREASED [None]
  - PHARMACEUTICAL PRODUCT COMPLAINT [None]
